FAERS Safety Report 21621044 (Version 1)
Quarter: 2022Q4

REPORT INFORMATION
  Report Type: Spontaneous
  Country: CA (occurrence: CA)
  Receive Date: 20221121
  Receipt Date: 20221121
  Transmission Date: 20230112
  Serious: Yes (Hospitalization)
  Sender: FDA-Public Use
  Company Number: None

PATIENT
  Age: 82 Year
  Sex: Male
  Weight: 85 kg

DRUGS (10)
  1. ROSUVASTATIN CALCIUM [Suspect]
     Active Substance: ROSUVASTATIN CALCIUM
     Indication: Product used for unknown indication
     Route: 048
  2. AMLODIPINE [Concomitant]
     Active Substance: AMLODIPINE BESYLATE
     Route: 065
  3. DIGOXIN [Concomitant]
     Active Substance: DIGOXIN
  4. ELIQUIS [Concomitant]
     Active Substance: APIXABAN
  5. EZETIMIBE [Concomitant]
     Active Substance: EZETIMIBE
  6. FAMOTIDINE [Concomitant]
     Active Substance: FAMOTIDINE
  7. JANUVIA [Concomitant]
     Active Substance: SITAGLIPTIN PHOSPHATE
     Route: 048
  8. LASIX [Concomitant]
     Active Substance: FUROSEMIDE
  9. METOPROLOL [Concomitant]
     Active Substance: METOPROLOL
     Route: 065
  10. RAMIPRIL [Concomitant]
     Active Substance: RAMIPRIL

REACTIONS (13)
  - Acidosis [Unknown]
  - Anaemia [Unknown]
  - Anion gap increased [Unknown]
  - Asthenia [Unknown]
  - Blood creatinine increased [Unknown]
  - Hyperkalaemia [Unknown]
  - Hyponatraemia [Unknown]
  - Hypotension [Unknown]
  - Malaise [Unknown]
  - Prohormone brain natriuretic peptide increased [Unknown]
  - Rhabdomyolysis [Unknown]
  - Troponin increased [Unknown]
  - White blood cell count increased [Unknown]
